FAERS Safety Report 4450191-1 (Version None)
Quarter: 2004Q3

REPORT INFORMATION
  Report Type: 
  Country: None (occurrence: None)
  Receive Date: 20040914
  Receipt Date: 20040830
  Transmission Date: 20050211
  Serious: Yes (Hospitalization)
  Sender: FDA-Public Use
  Company Number: 200465

PATIENT
  Age: 55 Year
  Sex: Female

DRUGS (9)
  1. AVONEX [Suspect]
     Indication: MULTIPLE SCLEROSIS
     Dosage: 30 MCG QW IM
     Route: 030
     Dates: start: 20000202
  2. AVONEX [Suspect]
     Indication: MULTIPLE SCLEROSIS
     Dosage: 30 MCG QW IM
     Route: 030
  3. PROPRANOLOL [Concomitant]
  4. NEURONTIN [Concomitant]
  5. BACLOFEN [Concomitant]
  6. SOLU-MEDROL [Concomitant]
  7. TIZANIDINE HCL [Concomitant]
  8. PEPCID [Concomitant]
  9. NAPROXEN [Concomitant]

REACTIONS (3)
  - DECUBITUS ULCER [None]
  - PARALYSIS [None]
  - WHEELCHAIR USER [None]
